FAERS Safety Report 17151139 (Version 1)
Quarter: 2019Q4

REPORT INFORMATION
  Report Type: Spontaneous
  Country: US (occurrence: US)
  Receive Date: 20191212
  Receipt Date: 20191212
  Transmission Date: 20200122
  Serious: Yes (Hospitalization, Other)
  Sender: FDA-Public Use
  Company Number: None

PATIENT
  Age: 51 Year
  Sex: Female

DRUGS (7)
  1. FOLIC ACID TAB 1MG [Concomitant]
     Dates: start: 20160706
  2. ALEVE TAB 220MG [Concomitant]
     Dates: start: 20160706
  3. CYCLOBENZAPR TAB 10 MG [Concomitant]
     Dates: start: 20180426
  4. PROBIOTIC CAP [Concomitant]
     Dates: start: 20160706
  5. METHOTREXATE TAB 2.5 MG [Concomitant]
     Dates: start: 20160706
  6. METHOTREXATE TAB 2.5 MG [Concomitant]
     Dates: start: 20191121
  7. HUMIRA [Suspect]
     Active Substance: ADALIMUMAB
     Indication: PSORIATIC ARTHROPATHY
     Dosage: ?          OTHER FREQUENCY:EVERY TWO WEEKS;?
     Route: 058
     Dates: start: 20190529

REACTIONS (2)
  - Therapy cessation [None]
  - Breast conserving surgery [None]
